FAERS Safety Report 18080835 (Version 2)
Quarter: 2020Q3

REPORT INFORMATION
  Report Type: Spontaneous
  Country: TW (occurrence: TW)
  Receive Date: 20200728
  Receipt Date: 20200929
  Transmission Date: 20201103
  Serious: Yes (Hospitalization)
  Sender: FDA-Public Use
  Company Number: TW-CELGENEUS-TWN-20200105791

PATIENT
  Age: 70 Year
  Sex: Male
  Weight: 58.3 kg

DRUGS (23)
  1. PRACINOSTAT [Concomitant]
     Active Substance: PRACINOSTAT
     Route: 065
     Dates: start: 20200113
  2. SALICYLIC ACID. [Concomitant]
     Active Substance: SALICYLIC ACID
     Indication: ERYTHEMA
  3. HYDROCORTISONE SODIUM SUCCINATE [Concomitant]
     Active Substance: HYDROCORTISONE SODIUM SUCCINATE
     Indication: TRANSFUSION
     Dosage: 100 MILLIGRAM
     Route: 040
     Dates: start: 20191219, end: 20191223
  4. XYLMOL [Concomitant]
     Indication: HAEMORRHOIDS
     Dosage: 1QS MG (LIDOCAINE 50 MG+ HYDROCORTISONE 2.75 MG/GM)
     Route: 061
     Dates: start: 20191205, end: 20200101
  5. SENNOSIDE A+B CALCIUM [Concomitant]
     Active Substance: SENNOSIDES A AND B
     Indication: CONSTIPATION
     Route: 048
     Dates: start: 20191203, end: 201912
  6. PRACINOSTAT [Concomitant]
     Active Substance: PRACINOSTAT
     Indication: ACUTE MYELOID LEUKAEMIA
     Dosage: 60 MILLIGRAM (3 WEEKS PER CYCLE)
     Route: 048
     Dates: start: 20191216, end: 20200103
  7. HYDROCORTISONE SODIUM SUCCINATE [Concomitant]
     Active Substance: HYDROCORTISONE SODIUM SUCCINATE
     Dosage: 100 MILLIGRAM
     Route: 040
     Dates: start: 20191227, end: 20200102
  8. DIPHENHYDRAMINE HCL [Concomitant]
     Active Substance: DIPHENHYDRAMINE HYDROCHLORIDE
     Indication: TRANSFUSION
     Dosage: 30 MILLIGRAM
     Route: 040
     Dates: start: 20191219, end: 20191223
  9. SENNOSIDE A+B CALCIUM [Concomitant]
     Active Substance: SENNOSIDES A AND B
     Route: 048
     Dates: start: 20191218, end: 20191224
  10. SENNOSIDE A+B CALCIUM [Concomitant]
     Active Substance: SENNOSIDES A AND B
     Route: 048
     Dates: start: 20200102
  11. CEFUROXIME. [Concomitant]
     Active Substance: CEFUROXIME
     Indication: SEPSIS
     Dosage: 4500 MILLIGRAM
     Route: 040
     Dates: start: 20191213, end: 20191218
  12. DIPHENHYDRAMINE HCL [Concomitant]
     Active Substance: DIPHENHYDRAMINE HYDROCHLORIDE
     Indication: SEPSIS
     Dosage: 30 MILLIGRAM
     Route: 040
     Dates: start: 20200103
  13. LOPERAMIDE [Concomitant]
     Active Substance: LOPERAMIDE
     Indication: DIARRHOEA
     Dosage: 2 MILLIGRAM
     Route: 048
     Dates: start: 20200110, end: 20200111
  14. SALICYLIC ACID. [Concomitant]
     Active Substance: SALICYLIC ACID
     Indication: RASH
     Dosage: 30MG + FM 0.2MG/GM
     Route: 061
     Dates: start: 20191218, end: 20200101
  15. GRANISETRON [Concomitant]
     Active Substance: GRANISETRON
     Indication: NAUSEA
     Dosage: 3 MILLIGRAM
     Route: 040
     Dates: start: 20191216, end: 20191220
  16. MOMETASONE FUROATE. [Concomitant]
     Active Substance: MOMETASONE FUROATE
     Indication: ERYTHEMA
  17. LACTULOSE. [Concomitant]
     Active Substance: LACTULOSE
     Dosage: 45 MILLILITER
     Route: 048
     Dates: start: 20191224, end: 20200101
  18. MOMETASONE FUROATE. [Concomitant]
     Active Substance: MOMETASONE FUROATE
     Indication: RASH
     Dosage: .2 PERCENT
     Route: 061
     Dates: start: 20191212
  19. GRANISETRON [Concomitant]
     Active Substance: GRANISETRON
     Indication: VOMITING
  20. LACTULOSE. [Concomitant]
     Active Substance: LACTULOSE
     Indication: CONSTIPATION
     Dosage: 240 MILLILITER
     Route: 048
     Dates: start: 20191203
  21. AZACITIDINE. [Suspect]
     Active Substance: AZACITIDINE
     Indication: ACUTE MYELOID LEUKAEMIA
     Dosage: 75 MILLIGRAM/SQ. METER
     Route: 058
     Dates: start: 20191216, end: 20191224
  22. FLUOCINONIDE LOTION 0.05% [Concomitant]
     Indication: PSORIASIS
     Dosage: .05 PERCENT
     Route: 061
     Dates: start: 20191218, end: 20200101
  23. POTASSIUM GLUCONATE (K20MEQ) [Concomitant]
     Indication: HYPOKALAEMIA
     Dosage: 45 MILLILITER
     Route: 048
     Dates: start: 20191216, end: 20191218

REACTIONS (1)
  - Sepsis [Recovered/Resolved]

NARRATIVE: CASE EVENT DATE: 20200103
